FAERS Safety Report 5175039-1 (Version None)
Quarter: 2006Q4

REPORT INFORMATION
  Report Type: 
  Country: None (occurrence: None)
  Receive Date: 20061206
  Receipt Date: 20061129
  Transmission Date: 20070319
  Serious: Yes (Hospitalization)
  Sender: FDA-Public Use
  Company Number: 2006S1000279

PATIENT
  Age: 33 Year
  Sex: Male

DRUGS (5)
  1. ACITRETIN [Suspect]
     Indication: PSORIASIS
     Dosage: 20 MG; QD; PO;  60 MG; QD; PO
     Route: 048
     Dates: start: 20031101, end: 20041201
  2. ACITRETIN [Suspect]
     Indication: PSORIASIS
     Dosage: 20 MG; QD; PO;  60 MG; QD; PO
     Route: 048
     Dates: start: 20021101
  3. CYCLOSPORINE [Suspect]
     Indication: PSORIASIS
     Dosage: 3 MG KG; QD; 1.5 MG KG; QD
     Dates: start: 20040101, end: 20040501
  4. CYCLOSPORINE [Suspect]
     Indication: PSORIASIS
     Dosage: 3 MG KG; QD; 1.5 MG KG; QD
     Dates: start: 20040501, end: 20040801
  5. BENDROFLUMETHIAZIDE [Concomitant]

REACTIONS (10)
  - BACK PAIN [None]
  - BLOOD PRESSURE INCREASED [None]
  - BONE DISORDER [None]
  - ILL-DEFINED DISORDER [None]
  - MUSCULAR WEAKNESS [None]
  - MUSCULOSKELETAL DISORDER [None]
  - MYOPATHY [None]
  - PAIN IN EXTREMITY [None]
  - SPINAL DISORDER [None]
  - SYNDESMOPHYTE [None]
